FAERS Safety Report 6664810-2 (Version None)
Quarter: 2010Q1

REPORT INFORMATION
  Report Type: 
  Country: None (occurrence: None)
  Receive Date: 20100330
  Receipt Date: 20100317
  Transmission Date: 20100710
  Serious: Yes (Hospitalization)
  Sender: FDA-Public Use
  Company Number: 230103J10BRA

PATIENT
  Age: 44 Year
  Sex: Female

DRUGS (5)
  1. REBIF [Suspect]
     Indication: RELAPSING-REMITTING MULTIPLE SCLEROSIS
     Dosage: 3 IN 1 WEEKS; 3 IN 1 WEEKS
     Dates: start: 20071210, end: 20100203
  2. REBIF [Suspect]
     Indication: RELAPSING-REMITTING MULTIPLE SCLEROSIS
     Dosage: 3 IN 1 WEEKS; 3 IN 1 WEEKS
     Dates: start: 20100203
  3. OTHERS (ALL OTHER THERAPEUTIC PRODUCTS) [Concomitant]
  4. DEPAKENE [Concomitant]
  5. B COMPLEX (NICOTINAM. W/PYRIDOXI. HCL/RIBOFL./THIAM. [Concomitant]

REACTIONS (4)
  - FATIGUE [None]
  - GAIT DISTURBANCE [None]
  - MULTIPLE SCLEROSIS RELAPSE [None]
  - SENSATION OF HEAVINESS [None]
